FAERS Safety Report 6957812-X (Version None)
Quarter: 2010Q3

REPORT INFORMATION
  Report Type: 
  Country: None (occurrence: None)
  Receive Date: 20100830
  Receipt Date: 20100830
  Transmission Date: 20110219
  Serious: Yes (Hospitalization)
  Sender: FDA-Public Use
  Company Number: None

PATIENT
  Age: 60 Year
  Sex: Female
  Weight: 68.0396 kg

DRUGS (13)
  1. SARGRAMOSTIM 500MCG/1CC GNEZYME [Suspect]
     Indication: NEUTROPENIA
     Dosage: 443MCG DAYS 3-13 SQ
     Route: 058
     Dates: start: 20100512, end: 20100824
  2. SARGRAMOSTIM 500MCG/1CC GNEZYME [Suspect]
     Indication: NON-HODGKIN'S LYMPHOMA
     Dosage: 443MCG DAYS 3-13 SQ
     Route: 058
     Dates: start: 20100512, end: 20100824
  3. OMEPRAZOLE [Concomitant]
  4. TRAMADOL HCL [Concomitant]
  5. COMPAZINE [Concomitant]
  6. ZOFRAN [Concomitant]
  7. BACTRIM DS [Concomitant]
  8. SIMETHICONE [Concomitant]
  9. ACETAMINOPHEN [Concomitant]
  10. COLACE [Concomitant]
  11. SENNA [Concomitant]
  12. BENADRYL [Concomitant]
  13. MIRALAX [Concomitant]

REACTIONS (5)
  - ABDOMINAL PAIN LOWER [None]
  - FATIGUE [None]
  - NAUSEA [None]
  - THROMBOCYTOPENIA [None]
  - VOMITING [None]
